FAERS Safety Report 16343668 (Version 1)
Quarter: 2019Q2

REPORT INFORMATION
  Report Type: Spontaneous
  Country: US (occurrence: US)
  Receive Date: 20190522
  Receipt Date: 20190522
  Transmission Date: 20190711
  Serious: No
  Sender: FDA-Public Use
  Company Number: US-PFIZER INC-2019213226

PATIENT
  Age: 65 Year
  Sex: Female

DRUGS (1)
  1. SPIRONOLACTONE. [Suspect]
     Active Substance: SPIRONOLACTONE
     Indication: ADRENAL DISORDER
     Dosage: UNK

REACTIONS (4)
  - Pain in extremity [Unknown]
  - Blood sodium decreased [Unknown]
  - Muscle spasms [Unknown]
  - Drug ineffective [Unknown]
